FAERS Safety Report 7820452-4 (Version None)
Quarter: 2011Q4

REPORT INFORMATION
  Report Type: 
  Country: None (occurrence: None)
  Receive Date: 20111018
  Receipt Date: 20111008
  Transmission Date: 20120403
  Serious: Yes (Hospitalization)
  Sender: FDA-Public Use
  Company Number: US-ROCHE-796756

PATIENT
  Sex: Male

DRUGS (2)
  1. RIBAVIRIN [Suspect]
     Indication: HEPATITIS C
     Dosage: IN DIVIDED DOSES, 3 RIVERS BRAND
     Route: 065
  2. PEGASYS [Suspect]
     Indication: HEPATITIS C
     Route: 065

REACTIONS (12)
  - DECREASED APPETITE [None]
  - EAR INFECTION [None]
  - NAUSEA [None]
  - MALAISE [None]
  - INSOMNIA [None]
  - CONSTIPATION [None]
  - CHILLS [None]
  - HEADACHE [None]
  - FATIGUE [None]
  - PYREXIA [None]
  - INJECTION SITE DISCOMFORT [None]
  - WEIGHT DECREASED [None]
